FAERS Safety Report 9540683 (Version 1)
Quarter: 2013Q3

REPORT INFORMATION
  Report Type: Spontaneous
  Country: US (occurrence: US)
  Receive Date: 20130920
  Receipt Date: 20130920
  Transmission Date: 20140515
  Serious: Yes (Other)
  Sender: FDA-Public Use
  Company Number: US-ASTRAZENECA-2013SE69233

PATIENT
  Age: 60 Year
  Sex: Female
  Weight: 117.9 kg

DRUGS (6)
  1. ARIMIDEX [Suspect]
     Indication: BREAST CANCER
     Route: 048
     Dates: start: 2006, end: 2010
  2. TOPROL XL [Suspect]
     Indication: HYPERTENSION
     Route: 048
  3. TOPROL XL [Suspect]
     Indication: HYPERTENSION
     Dosage: GENERIC, 50 MG DAILY
     Route: 065
  4. TAMOXIFEN [Suspect]
     Indication: BREAST CANCER
     Route: 048
     Dates: start: 2001, end: 2006
  5. BUPROPION [Concomitant]
     Indication: DEPRESSION
     Route: 048
  6. VITAMINS NOT SPECIFIED [Concomitant]
     Dosage: NOT SPECIFIED DAILY
     Route: 048

REACTIONS (11)
  - Cerebrovascular accident [Unknown]
  - Breast cancer [Recovered/Resolved]
  - Dizziness [Recovered/Resolved]
  - Thyroid disorder [Not Recovered/Not Resolved]
  - Endometrial hypertrophy [Not Recovered/Not Resolved]
  - Rash [Recovered/Resolved]
  - Vaginal haemorrhage [Recovered/Resolved]
  - Blood cholesterol increased [Not Recovered/Not Resolved]
  - Panic attack [Not Recovered/Not Resolved]
  - Weight fluctuation [Not Recovered/Not Resolved]
  - Drug dose omission [Recovered/Resolved]
